FAERS Safety Report 8798401 (Version 1)
Quarter: 2012Q4

REPORT INFORMATION
  Report Type: Report from Study
  Country: CA (occurrence: CA)
  Receive Date: 20120920
  Receipt Date: 20120920
  Transmission Date: 20130627
  Serious: Yes (Other)
  Sender: FDA-Public Use
  Company Number: CA-ROCHE-1104754

PATIENT
  Age: 76 Year
  Sex: Female

DRUGS (10)
  1. MABTHERA [Suspect]
     Indication: RHEUMATOID ARTHRITIS
     Route: 042
     Dates: start: 20120813
  2. METHOTREXATE [Concomitant]
  3. RAMIPRIL [Concomitant]
  4. TIAZAC [Concomitant]
  5. LIPITOR [Concomitant]
  6. ONGLYZA [Concomitant]
  7. ASA [Concomitant]
  8. FOLIC ACID [Concomitant]
  9. ESOMEPRAZOLE [Concomitant]
  10. PREDNISONE [Concomitant]

REACTIONS (3)
  - Blood glucose increased [Not Recovered/Not Resolved]
  - Thirst [Recovered/Resolved]
  - Insomnia [Recovered/Resolved]
